FAERS Safety Report 9794651 (Version 1)
Quarter: 2014Q1

REPORT INFORMATION
  Report Type: Report from Study
  Country: FR (occurrence: FR)
  Receive Date: 20140102
  Receipt Date: 20140102
  Transmission Date: 20141002
  Serious: Yes (Hospitalization)
  Sender: FDA-Public Use
  Company Number: FR-TEVA-453203ISR

PATIENT
  Age: 72 Year
  Sex: Female
  Weight: 47 kg

DRUGS (4)
  1. MYOCET [Suspect]
     Indication: OVARIAN CANCER
     Dates: start: 20131017
  2. CARBOPLATIN [Suspect]
     Indication: OVARIAN CANCER
     Dates: start: 20131017
  3. ARIXTRA 2.5 MG [Concomitant]
     Route: 048
  4. INEXIUM [Concomitant]

REACTIONS (1)
  - Lung disorder [Recovered/Resolved]
